FAERS Safety Report 7777184-0 (Version None)
Quarter: 2011Q3

REPORT INFORMATION
  Report Type: 
  Country: None (occurrence: None)
  Receive Date: 20110926
  Receipt Date: 20110915
  Transmission Date: 20111222
  Serious: Yes (Other)
  Sender: FDA-Public Use
  Company Number: US-JNJFOC-20110906938

PATIENT
  Sex: Male
  Weight: 50.35 kg

DRUGS (2)
  1. REMICADE [Suspect]
     Indication: COLITIS ULCERATIVE
     Route: 042
     Dates: start: 20070401
  2. PREDNISONE [Suspect]
     Indication: COLITIS ULCERATIVE
     Route: 048

REACTIONS (5)
  - BLOOD GLUCOSE INCREASED [None]
  - HERPES ZOSTER [None]
  - MUSCLE SPASMS [None]
  - OSTEOPOROSIS [None]
  - PAIN [None]
